FAERS Safety Report 14044265 (Version 1)
Quarter: 2017Q4

REPORT INFORMATION
  Report Type: Spontaneous
  Country: US (occurrence: US)
  Receive Date: 20171004
  Receipt Date: 20171004
  Transmission Date: 20180321
  Serious: Yes (Other)
  Sender: FDA-Public Use
  Company Number: None

PATIENT
  Sex: Female
  Weight: 94.41 kg

DRUGS (12)
  1. FERROUS SULFATE. [Concomitant]
     Active Substance: FERROUS SULFATE
  2. SERTRALINE [Concomitant]
     Active Substance: SERTRALINE HYDROCHLORIDE
  3. QUETIAPINE. [Concomitant]
     Active Substance: QUETIAPINE
  4. MEKINIST [Suspect]
     Active Substance: TRAMETINIB DIMETHYL SULFOXIDE
     Indication: ANAEMIA
     Route: 048
     Dates: start: 20170508
  5. TAFINLAR [Suspect]
     Active Substance: DABRAFENIB MESYLATE
     Indication: ANAEMIA
     Route: 048
     Dates: start: 20170508
  6. QUETIAPINE. [Concomitant]
     Active Substance: QUETIAPINE
  7. VITAMIN D3 [Concomitant]
     Active Substance: CHOLECALCIFEROL
  8. OMEPRAZOLE. [Concomitant]
     Active Substance: OMEPRAZOLE
  9. BENICAR [Concomitant]
     Active Substance: OLMESARTAN MEDOXOMIL
  10. SUCRALFATE. [Concomitant]
     Active Substance: SUCRALFATE
  11. CARVEDILOL. [Concomitant]
     Active Substance: CARVEDILOL
  12. ATORVASTATIN [Concomitant]
     Active Substance: ATORVASTATIN

REACTIONS (2)
  - Therapy cessation [None]
  - Dementia [None]
